FAERS Safety Report 18695995 (Version 2)
Quarter: 2021Q3

REPORT INFORMATION
  Report Type: Spontaneous
  Country: FR (occurrence: FR)
  Receive Date: 20210104
  Receipt Date: 20210830
  Transmission Date: 20211014
  Serious: Yes (Hospitalization)
  Sender: FDA-Public Use
  Company Number: FR-EXELIXIS-CABO-20034882

PATIENT
  Age: 69 Year
  Sex: Male
  Weight: 82 kg

DRUGS (34)
  1. NIVOLUMAB [Suspect]
     Active Substance: NIVOLUMAB
     Dosage: 100 ML
     Route: 065
     Dates: start: 20190816, end: 20190816
  2. NIVOLUMAB [Suspect]
     Active Substance: NIVOLUMAB
     Dosage: 100 ML
     Route: 065
     Dates: start: 20191108, end: 20191108
  3. IPILIMUMAB [Suspect]
     Active Substance: IPILIMUMAB
     Indication: RENAL CANCER METASTATIC
     Dosage: 50 ML
     Route: 065
     Dates: start: 20190816, end: 20190816
  4. IPILIMUMAB [Suspect]
     Active Substance: IPILIMUMAB
     Dosage: 50 ML
     Route: 065
     Dates: start: 20190927, end: 20190927
  5. APROVEL [Concomitant]
     Active Substance: IRBESARTAN
     Indication: PRODUCT USED FOR UNKNOWN INDICATION
     Dosage: 300 MG
     Route: 048
     Dates: start: 2018
  6. DUPHALAC [Concomitant]
     Active Substance: LACTULOSE
     Indication: PRODUCT USED FOR UNKNOWN INDICATION
     Dosage: 1 {DF}
     Route: 048
     Dates: start: 20190927
  7. NIVOLUMAB [Suspect]
     Active Substance: NIVOLUMAB
     Dosage: 100 ML
     Route: 065
     Dates: start: 20190906, end: 20190906
  8. NIVOLUMAB [Suspect]
     Active Substance: NIVOLUMAB
     Dosage: 100 ML
     Route: 065
     Dates: start: 20191206, end: 20191206
  9. NIVOLUMAB [Suspect]
     Active Substance: NIVOLUMAB
     Dosage: 100 ML
     Route: 065
     Dates: start: 20200103, end: 20200103
  10. NIVOLUMAB [Suspect]
     Active Substance: NIVOLUMAB
     Dosage: 100 ML
     Route: 065
     Dates: start: 20200623, end: 20200623
  11. IPILIMUMAB [Suspect]
     Active Substance: IPILIMUMAB
     Dosage: 50 ML
     Route: 065
     Dates: start: 20191018, end: 20191018
  12. CABOMETYX [Suspect]
     Active Substance: CABOZANTINIB S-MALATE
     Indication: RENAL CANCER METASTATIC
     Dosage: 40 MG
     Route: 048
     Dates: start: 20200819
  13. CABOMETYX [Suspect]
     Active Substance: CABOZANTINIB S-MALATE
     Indication: HEPATIC CANCER
     Dosage: 1 {DF}, QD
     Route: 048
     Dates: end: 20200902
  14. NIVOLUMAB [Suspect]
     Active Substance: NIVOLUMAB
     Dosage: 100 ML
     Route: 065
     Dates: start: 20190927, end: 20190927
  15. NIVOLUMAB [Suspect]
     Active Substance: NIVOLUMAB
     Dosage: 100 ML
     Route: 065
     Dates: start: 20200131, end: 20200131
  16. NIVOLUMAB [Suspect]
     Active Substance: NIVOLUMAB
     Dosage: UNK
     Route: 065
     Dates: start: 20200722, end: 20200722
  17. IPILIMUMAB [Suspect]
     Active Substance: IPILIMUMAB
     Dosage: 50 ML
     Route: 065
     Dates: start: 20190906, end: 20190906
  18. EZETIMIBE. [Concomitant]
     Active Substance: EZETIMIBE
     Indication: PRODUCT USED FOR UNKNOWN INDICATION
     Dosage: 10 MG
     Route: 048
     Dates: start: 2018
  19. VENLAFAXINE [Concomitant]
     Active Substance: VENLAFAXINE HYDROCHLORIDE
     Indication: DEPRESSION
     Dosage: 150 MG, QD
     Route: 048
  20. RAMIPRIL. [Concomitant]
     Active Substance: RAMIPRIL
     Indication: HYPERTENSION
     Dosage: 2.5 MG, QD
     Route: 048
  21. NIVOLUMAB [Suspect]
     Active Substance: NIVOLUMAB
     Indication: RENAL CANCER METASTATIC
     Dosage: 100 ML
     Route: 065
     Dates: start: 20190227, end: 20190227
  22. NIVOLUMAB [Suspect]
     Active Substance: NIVOLUMAB
     Dosage: 100 ML
     Route: 065
     Dates: start: 20190507, end: 20190507
  23. NIVOLUMAB [Suspect]
     Active Substance: NIVOLUMAB
     Dosage: UNK
     Route: 065
     Dates: start: 20190722, end: 20190722
  24. NIVOLUMAB [Suspect]
     Active Substance: NIVOLUMAB
     Dosage: 100 ML
     Route: 065
     Dates: start: 20200227, end: 20200227
  25. NIVOLUMAB [Suspect]
     Active Substance: NIVOLUMAB
     Dosage: 100 ML
     Route: 065
     Dates: start: 20200326, end: 20200326
  26. ONDANSETRON [Concomitant]
     Active Substance: ONDANSETRON
     Indication: PRODUCT USED FOR UNKNOWN INDICATION
     Dosage: 8 MG
     Route: 048
     Dates: start: 20190521
  27. ZOPHREN [Concomitant]
     Active Substance: ONDANSETRON
     Indication: PRODUCT USED FOR UNKNOWN INDICATION
     Dosage: 12 MG
     Route: 048
     Dates: start: 20200623
  28. CABOMETYX [Suspect]
     Active Substance: CABOZANTINIB S-MALATE
     Dosage: 20 MG
     Route: 048
     Dates: start: 20201119
  29. NIVOLUMAB [Suspect]
     Active Substance: NIVOLUMAB
     Dosage: 100 ML
     Route: 065
     Dates: start: 20190326, end: 20190326
  30. NIVOLUMAB [Suspect]
     Active Substance: NIVOLUMAB
     Dosage: 100 ML
     Route: 065
     Dates: start: 20190623, end: 20190623
  31. NIVOLUMAB [Suspect]
     Active Substance: NIVOLUMAB
     Dosage: 100 ML
     Route: 065
     Dates: start: 20200819, end: 20200819
  32. NIVOLUMAB [Suspect]
     Active Substance: NIVOLUMAB
     Dosage: 100 ML
     Route: 065
     Dates: start: 20200507, end: 20200507
  33. VOGALENE [Concomitant]
     Active Substance: METOPIMAZINE
     Indication: PRODUCT USED FOR UNKNOWN INDICATION
     Dosage: 3 {DF}
     Route: 054
     Dates: start: 20191108
  34. NIVOLUMAB [Suspect]
     Active Substance: NIVOLUMAB
     Dosage: 100 ML
     Route: 065
     Dates: start: 20191018, end: 20191018

REACTIONS (11)
  - Dyspepsia [Recovering/Resolving]
  - Palmar-plantar erythrodysaesthesia syndrome [Not Recovered/Not Resolved]
  - Pruritus [Recovered/Resolved]
  - Nausea [Recovering/Resolving]
  - Asthenia [Recovering/Resolving]
  - Impetigo [Recovering/Resolving]
  - Dizziness [Not Recovered/Not Resolved]
  - Fatigue [Not Recovered/Not Resolved]
  - Varicose ulceration [Not Recovered/Not Resolved]
  - Dyspnoea [Not Recovered/Not Resolved]
  - Diarrhoea [Not Recovered/Not Resolved]

NARRATIVE: CASE EVENT DATE: 202008
